FAERS Safety Report 14564867 (Version 3)
Quarter: 2018Q2

REPORT INFORMATION
  Report Type: Spontaneous
  Country: JP (occurrence: JP)
  Receive Date: 20180223
  Receipt Date: 20180411
  Transmission Date: 20180711
  Serious: Yes (Life-Threatening, Hospitalization)
  Sender: FDA-Public Use
  Company Number: JP-B.I. PHARMACEUTICALS,INC./RIDGEFIELD-2018-NB-000421

PATIENT
  Age: 78 Year
  Sex: Female

DRUGS (2)
  1. PRAZAXA [Suspect]
     Active Substance: DABIGATRAN ETEXILATE MESYLATE
     Indication: ATRIAL FIBRILLATION
     Route: 048
     Dates: end: 20180129
  2. TAKELDA [Suspect]
     Active Substance: ASPIRIN\LANSOPRAZOLE
     Indication: MYOCARDIAL INFARCTION
     Route: 048

REACTIONS (3)
  - Paranasal sinus and nasal cavity malignant neoplasm [Recovered/Resolved]
  - Paranasal sinus haemorrhage [Recovered/Resolved]
  - Eye haematoma [Recovered/Resolved]

NARRATIVE: CASE EVENT DATE: 201307
